FAERS Safety Report 20082870 (Version 3)
Quarter: 2022Q1

REPORT INFORMATION
  Report Type: Report from Study
  Country: FR (occurrence: FR)
  Receive Date: 20211117
  Receipt Date: 20220317
  Transmission Date: 20220423
  Serious: Yes (Hospitalization)
  Sender: FDA-Public Use
  Company Number: FR-002147023-NVSC2021FR245218

PATIENT
  Age: 28 Year
  Sex: Male
  Weight: 77 kg

DRUGS (21)
  1. CYTARABINE [Suspect]
     Active Substance: CYTARABINE
     Dosage: 40 MG
     Route: 037
     Dates: start: 20210727, end: 20210924
  2. CYTARABINE [Suspect]
     Active Substance: CYTARABINE
     Dosage: 23.6 MG
     Route: 042
     Dates: start: 20210826, end: 20210827
  3. VINCRISTINE [Suspect]
     Active Substance: VINCRISTINE
     Dosage: 2 MG
     Route: 042
     Dates: start: 20210727, end: 20211001
  4. METHOTREXATE [Suspect]
     Active Substance: METHOTREXATE
     Dosage: 15 MG
     Dates: start: 20210722, end: 20210924
  5. METHOTREXATE [Suspect]
     Active Substance: METHOTREXATE
     Dosage: 1950 MG
     Route: 042
     Dates: start: 20210824, end: 20210824
  6. PREDNISONE [Suspect]
     Active Substance: PREDNISONE
     Dosage: 40 MG
     Route: 037
     Dates: start: 20210722, end: 20210924
  7. NILOTINIB [Suspect]
     Active Substance: NILOTINIB
     Dosage: 800 MG, DAILY
     Route: 048
     Dates: start: 20210727
  8. DEXAMETHASONE [Suspect]
     Active Substance: DEXAMETHASONE
     Dosage: 40 MG
     Route: 042
     Dates: start: 20210727, end: 20211002
  9. ALPRAZOLAM [Concomitant]
     Active Substance: ALPRAZOLAM
     Indication: Anxiety
     Dosage: 0.5 MG, DAILY
     Route: 048
     Dates: start: 20210805
  10. VALACYCLOVIR HYDROCHLORIDE [Concomitant]
     Active Substance: VALACYCLOVIR HYDROCHLORIDE
     Indication: Prophylaxis
     Dosage: 1 G, DAILY
     Route: 048
     Dates: start: 20210719
  11. AMIKACIN [Concomitant]
     Active Substance: AMIKACIN
     Indication: Prophylaxis
     Dosage: 50 MG, DAILY
     Route: 048
     Dates: start: 20210805
  12. NEFOPAM [Concomitant]
     Active Substance: NEFOPAM
     Indication: Musculoskeletal chest pain
     Dosage: 80 MG, DAILY
     Route: 042
     Dates: start: 20210806, end: 20210809
  13. FILGRASTIM [Concomitant]
     Active Substance: FILGRASTIM
     Indication: Aplasia
     Dosage: 48 IU, DAILY
     Route: 058
     Dates: start: 20210807
  14. CIPROFLOXACIN [Concomitant]
     Active Substance: CIPROFLOXACIN
     Indication: Prophylaxis
     Dosage: 400 MG, DAILY
     Route: 042
     Dates: start: 20210807
  15. TIAPRIDE HYDROCHLORIDE [Concomitant]
     Active Substance: TIAPRIDE HYDROCHLORIDE
     Indication: Anxiety
     Dosage: 100 MG, DAILY
     Route: 042
     Dates: start: 20210806
  16. CAFFEINE CITRATE [Concomitant]
     Active Substance: CAFFEINE CITRATE
     Indication: Headache
     Dosage: 1558 MG, DAILY
     Route: 042
     Dates: start: 20210803, end: 20210806
  17. CAFFEINE CITRATE [Concomitant]
     Active Substance: CAFFEINE CITRATE
     Dosage: 389.5 UNK
     Route: 042
     Dates: start: 20210807
  18. OMEPRAZOLE [Concomitant]
     Active Substance: OMEPRAZOLE
     Indication: Gastrooesophageal reflux disease
     Dosage: 20 MG
     Route: 048
     Dates: start: 20211001, end: 20211101
  19. SULFAMETHOXAZOLE\TRIMETHOPRIM [Concomitant]
     Active Substance: SULFAMETHOXAZOLE\TRIMETHOPRIM
     Indication: Prophylaxis
     Dosage: UNK
     Route: 048
     Dates: start: 20211001, end: 20211101
  20. LEUCOVORIN CALCIUM [Concomitant]
     Active Substance: LEUCOVORIN CALCIUM
     Indication: Prophylaxis
     Dosage: 25 MG, DAILY
     Route: 048
     Dates: start: 20211001, end: 20211101
  21. DOMPERIDONE [Concomitant]
     Active Substance: DOMPERIDONE
     Indication: Nausea
     Dosage: 60 MG, DAILY
     Route: 048
     Dates: start: 20211001, end: 20211101

REACTIONS (2)
  - Post lumbar puncture syndrome [Recovered/Resolved]
  - Escherichia infection [Recovered/Resolved]

NARRATIVE: CASE EVENT DATE: 20210810
